FAERS Safety Report 24813000 (Version 2)
Quarter: 2025Q1

REPORT INFORMATION
  Report Type: Spontaneous
  Country: AU (occurrence: AU)
  Receive Date: 20250107
  Receipt Date: 20250116
  Transmission Date: 20250409
  Serious: Yes (Other)
  Sender: NOVO NORDISK
  Company Number: AU-NOVOPROD-1343873

PATIENT

DRUGS (3)
  1. WEGOVY [Suspect]
     Active Substance: SEMAGLUTIDE
     Indication: Product used for unknown indication
  2. WEGOVY [Suspect]
     Active Substance: SEMAGLUTIDE
  3. WEGOVY [Suspect]
     Active Substance: SEMAGLUTIDE

REACTIONS (19)
  - Laryngeal injury [Unknown]
  - Anal incontinence [Unknown]
  - Feeding disorder [Unknown]
  - Malaise [Unknown]
  - Physical deconditioning [Unknown]
  - Gait disturbance [Unknown]
  - Decreased appetite [Unknown]
  - Diarrhoea [Unknown]
  - Vomiting [Unknown]
  - Eructation [Unknown]
  - Nausea [Unknown]
  - Fatigue [Unknown]
  - Asthenia [Unknown]
  - Weight loss poor [Unknown]
  - Nausea [Unknown]
  - Gastrointestinal pain [Unknown]
  - Flatulence [Unknown]
  - Constipation [Unknown]
  - Asthenia [Unknown]
